FAERS Safety Report 7735396-6 (Version None)
Quarter: 2011Q3

REPORT INFORMATION
  Report Type: 
  Country: None (occurrence: None)
  Receive Date: 20110907
  Receipt Date: 20110907
  Transmission Date: 20111222
  Serious: Yes (Other)
  Sender: FDA-Public Use
  Company Number: GB-PFIZER INC-2011061014

PATIENT
  Sex: Female

DRUGS (1)
  1. GENOTROPIN [Suspect]
     Dosage: 0.9 MG, 1X/DAY
     Dates: start: 20110301

REACTIONS (5)
  - EPISTAXIS [None]
  - HEADACHE [None]
  - DRUG PRESCRIBING ERROR [None]
  - DYSARTHRIA [None]
  - POOR QUALITY DRUG ADMINISTERED [None]
